FAERS Safety Report 16966796 (Version 2)
Quarter: 2019Q4

REPORT INFORMATION
  Report Type: Spontaneous
  Country: JP (occurrence: JP)
  Receive Date: 20191028
  Receipt Date: 20191121
  Transmission Date: 20200122
  Serious: Yes (Hospitalization, Other)
  Sender: FDA-Public Use
  Company Number: NVSJ2019JP000946

PATIENT
  Age: 25 Year
  Sex: Female
  Weight: 40 kg

DRUGS (3)
  1. NEORAL [Suspect]
     Active Substance: CYCLOSPORINE
     Indication: TRANSPLANT
     Dosage: 20 MG, UNK
     Route: 065
  2. NEORAL [Suspect]
     Active Substance: CYCLOSPORINE
     Dosage: 80 MG, UNK
     Route: 065
  3. PREDNISOLONE. [Concomitant]
     Active Substance: PREDNISOLONE
     Indication: CHRONIC GRAFT VERSUS HOST DISEASE
     Dosage: 1 MG/KG, UNK
     Route: 048

REACTIONS (10)
  - Muscle atrophy [Unknown]
  - Abdominal pain [Unknown]
  - Pyrexia [Unknown]
  - Loss of consciousness [Unknown]
  - Hepatic function abnormal [Unknown]
  - Neuralgia [Unknown]
  - Blister [Recovering/Resolving]
  - Neuralgic amyotrophy [Recovering/Resolving]
  - Chronic graft versus host disease [Recovering/Resolving]
  - Varicella zoster virus infection [Recovered/Resolved]
